FAERS Safety Report 6417360-2 (Version None)
Quarter: 2009Q4

REPORT INFORMATION
  Report Type: 
  Country: None (occurrence: None)
  Receive Date: 20091028
  Receipt Date: 20091016
  Transmission Date: 20100525
  Serious: Yes (Death)
  Sender: FDA-Public Use
  Company Number: JP-PFIZER INC-2009281430

PATIENT
  Age: 82 Year

DRUGS (3)
  1. ZYVOX [Suspect]
     Indication: SEPSIS
     Dosage: 1200MG/DAY
     Route: 042
     Dates: start: 20090604, end: 20090611
  2. VANCOMYCIN HYDROCHLORIDE [Concomitant]
  3. TEICOPLANIN [Concomitant]

REACTIONS (3)
  - BLOOD CREATININE INCREASED [None]
  - BLOOD UREA INCREASED [None]
  - CARDIAC FAILURE [None]
